FAERS Safety Report 23830408 (Version 2)
Quarter: 2024Q3

REPORT INFORMATION
  Report Type: Spontaneous
  Country: IN (occurrence: IN)
  Receive Date: 20240508
  Receipt Date: 20240711
  Transmission Date: 20241016
  Serious: Yes (Death)
  Sender: FERRING
  Company Number: IN-FERRINGPH-2024FE02187

PATIENT

DRUGS (1)
  1. DINOPROSTONE [Suspect]
     Active Substance: DINOPROSTONE
     Indication: Induction of cervix ripening
     Dosage: 10 MG
     Route: 065
     Dates: start: 20240427, end: 20240428

REACTIONS (3)
  - Disseminated intravascular coagulation [Fatal]
  - Postpartum haemorrhage [Unknown]
  - Failure to suspend medication [Unknown]

NARRATIVE: CASE EVENT DATE: 20240427
